FAERS Safety Report 9433297 (Version 1)
Quarter: 2013Q3

REPORT INFORMATION
  Report Type: Spontaneous
  Country: GR (occurrence: GR)
  Receive Date: 20130731
  Receipt Date: 20130731
  Transmission Date: 20140515
  Serious: Yes (Life-Threatening, Hospitalization, Other)
  Sender: FDA-Public Use
  Company Number: GR-ACTAVIS-2013-13200

PATIENT
  Age: 70 Year
  Sex: Female

DRUGS (2)
  1. CIPROFLOXACIN HYDROCHLORIDE (UNKNOWN) [Suspect]
     Indication: CHOLECYSTITIS
     Dosage: 400 MG, BID
     Route: 042
  2. SOTALOL [Concomitant]
     Indication: ATRIAL FIBRILLATION
     Dosage: 40 MG, BID
     Route: 048

REACTIONS (2)
  - Torsade de pointes [Recovered/Resolved]
  - Long QT syndrome [Recovered/Resolved]
